FAERS Safety Report 24655218 (Version 1)
Quarter: 2024Q4

REPORT INFORMATION
  Report Type: Spontaneous
  Country: PL (occurrence: PL)
  Receive Date: 20241123
  Receipt Date: 20241123
  Transmission Date: 20250114
  Serious: Yes (Hospitalization, Other)
  Sender: AUROBINDO
  Company Number: PL-GSK-PL2024GSK136367

PATIENT
  Age: 66 Year
  Sex: Female

DRUGS (2)
  1. ACETAMINOPHEN [Suspect]
     Active Substance: ACETAMINOPHEN
     Indication: Product used for unknown indication
     Dosage: UNK
     Route: 065
  2. ZOLPIDEM TARTRATE [Suspect]
     Active Substance: ZOLPIDEM TARTRATE
     Indication: Product used for unknown indication
     Dosage: 200 MILLIGRAM
     Route: 065
     Dates: start: 202405

REACTIONS (10)
  - Bradypnoea [Recovering/Resolving]
  - General physical health deterioration [Recovering/Resolving]
  - Hypotension [Recovering/Resolving]
  - Loss of consciousness [Recovering/Resolving]
  - Suicide attempt [Recovering/Resolving]
  - Unresponsive to stimuli [Recovering/Resolving]
  - Toxicity to various agents [Recovering/Resolving]
  - Confusional state [Recovering/Resolving]
  - Rales [Recovering/Resolving]
  - Tearfulness [Recovering/Resolving]

NARRATIVE: CASE EVENT DATE: 20240501
